FAERS Safety Report 8138907-4 (Version None)
Quarter: 2012Q1

REPORT INFORMATION
  Report Type: 
  Country: None (occurrence: None)
  Receive Date: 20120215
  Receipt Date: 20120207
  Transmission Date: 20120608
  Serious: No
  Sender: FDA-Public Use
  Company Number: US-BAYER-2011-110793

PATIENT
  Age: 27 Year
  Sex: Female

DRUGS (3)
  1. MIRENA [Suspect]
     Indication: CONTRACEPTION
     Dosage: 20 ?G/D, CONT
     Route: 015
     Dates: start: 20110428, end: 20111129
  2. INOSITOL [Concomitant]
     Dosage: UNK UNK, QD
  3. ZOLOFT [Interacting]
     Indication: ANXIETY
     Dosage: UNK
     Dates: start: 20110201

REACTIONS (5)
  - HORMONE LEVEL ABNORMAL [None]
  - ABDOMINAL PAIN UPPER [None]
  - SLEEP DISORDER [None]
  - HEADACHE [None]
  - ANXIETY [None]
